FAERS Safety Report 9640844 (Version 1)
Quarter: 2013Q4

REPORT INFORMATION
  Report Type: Spontaneous
  Country: US (occurrence: None)
  Receive Date: 20131021
  Receipt Date: 20131021
  Transmission Date: 20140711
  Serious: Yes (Hospitalization)
  Sender: FDA-Public Use
  Company Number: B0932017A

PATIENT
  Sex: Male

DRUGS (5)
  1. PANTOPRAZOLE [Suspect]
  2. LANSOPRAZOLE [Suspect]
  3. OMEPRAZOLE [Suspect]
  4. ZANTAC [Suspect]
  5. FLUTICASONE PROPIONATE [Suspect]

REACTIONS (9)
  - Eosinophilic oesophagitis [None]
  - Rash pruritic [None]
  - Agitation [None]
  - Urticaria [None]
  - Vomiting [None]
  - Drug hypersensitivity [None]
  - Disease recurrence [None]
  - Gastrooesophageal reflux disease [None]
  - Gastrooesophageal reflux disease [None]
